FAERS Safety Report 20344200 (Version 1)
Quarter: 2022Q1

REPORT INFORMATION
  Report Type: Spontaneous
  Country: CO (occurrence: CO)
  Receive Date: 20220118
  Receipt Date: 20220118
  Transmission Date: 20220423
  Serious: Yes (Other)
  Sender: FDA-Public Use
  Company Number: CO-ABBVIE-22K-036-4238539-00

PATIENT
  Age: 54 Year
  Sex: Female

DRUGS (5)
  1. HUMIRA [Suspect]
     Active Substance: ADALIMUMAB
     Indication: Product used for unknown indication
     Route: 058
  2. ENBREL [Suspect]
     Active Substance: ETANERCEPT
     Indication: Ankylosing spondylitis
     Route: 058
     Dates: start: 2009, end: 202101
  3. COVID-19 VACCINE [Concomitant]
     Indication: COVID-19 immunisation
     Dosage: SINOVAC
     Route: 030
  4. COVID-19 VACCINE [Concomitant]
     Dosage: SINOVAC
     Route: 030
  5. COVID-19 VACCINE [Concomitant]
     Dosage: SINOVAC
     Route: 030
     Dates: start: 20211218, end: 20211218

REACTIONS (7)
  - Silent myocardial infarction [Unknown]
  - Cardiac valve disease [Unknown]
  - Spinal pain [Not Recovered/Not Resolved]
  - Muscle rigidity [Not Recovered/Not Resolved]
  - COVID-19 [Recovered/Resolved]
  - Malaise [Not Recovered/Not Resolved]
  - COVID-19 [Not Recovered/Not Resolved]

NARRATIVE: CASE EVENT DATE: 20210216
